FAERS Safety Report 20901632 (Version 1)
Quarter: 2022Q2

REPORT INFORMATION
  Report Type: Spontaneous
  Country: US (occurrence: None)
  Receive Date: 20220601
  Receipt Date: 20220601
  Transmission Date: 20220721
  Serious: No
  Sender: FDA-Public Use
  Company Number: None

PATIENT
  Sex: Female

DRUGS (2)
  1. SOFOSBUVIR\VELPATASVIR [Suspect]
     Active Substance: SOFOSBUVIR\VELPATASVIR
     Indication: Hepatitis C
     Dosage: 400/100MG DAILY BY MOUTH? ?
     Route: 048
     Dates: start: 20220420
  2. SOFOSBUVIR\VELPATASVIR [Suspect]
     Active Substance: SOFOSBUVIR\VELPATASVIR
     Indication: Hepatic cirrhosis

REACTIONS (3)
  - Amnesia [None]
  - Vision blurred [None]
  - Confusional state [None]
